FAERS Safety Report 10086957 (Version 1)
Quarter: 2014Q2

REPORT INFORMATION
  Report Type: Spontaneous
  Country: GB (occurrence: GB)
  Receive Date: 20140418
  Receipt Date: 20140418
  Transmission Date: 20141212
  Serious: Yes (Other)
  Sender: FDA-Public Use
  Company Number: GB-ACTAVIS-2014-07588

PATIENT
  Age: 80 Year
  Sex: Female

DRUGS (7)
  1. FERROUS FUMARATE (UNKNOWN) [Suspect]
     Indication: ANAEMIA
     Dosage: UNK
     Route: 065
  2. TRAMADOL (UNKNOWN) [Suspect]
     Indication: SKIN ULCER
     Dosage: UNK
     Route: 065
  3. WARFARIN (UNKNOWN) [Suspect]
     Indication: PRODUCT USED FOR UNKNOWN INDICATION
     Dosage: UNK
     Route: 065
  4. ACECLOFENAC [Suspect]
     Indication: PRODUCT USED FOR UNKNOWN INDICATION
     Dosage: UNK
     Route: 065
  5. MACRODANTIN [Suspect]
     Indication: INFECTION
     Dosage: UNK; MERCURY PHARMACEUTICALS LIMITED
     Route: 048
     Dates: start: 20140306, end: 20140309
  6. OXYCONTIN [Suspect]
     Indication: PRODUCT USED FOR UNKNOWN INDICATION
     Dosage: UNK; 20MG/40 MG
     Route: 065
  7. ZINC [Suspect]
     Indication: PRODUCT USED FOR UNKNOWN INDICATION
     Dosage: UNK; COMPLEX
     Route: 065

REACTIONS (2)
  - Macular degeneration [Not Recovered/Not Resolved]
  - Vision blurred [Not Recovered/Not Resolved]
